FAERS Safety Report 18577861 (Version 1)
Quarter: 2020Q4

REPORT INFORMATION
  Report Type: Report from Study
  Country: None (occurrence: US)
  Receive Date: 20201204
  Receipt Date: 20201204
  Transmission Date: 20210114
  Serious: Yes (Hospitalization, Other)
  Sender: FDA-Public Use
  Company Number: US-ABBVIE-20K-163-3634538-00

PATIENT
  Age: 71 Year
  Sex: Female
  Weight: 71.28 kg

DRUGS (1)
  1. HUMIRA [Suspect]
     Active Substance: ADALIMUMAB
     Indication: HIDRADENITIS
     Dosage: CITRATE FREE
     Route: 058
     Dates: start: 2018, end: 202008

REACTIONS (9)
  - Haemoglobin decreased [Recovered/Resolved]
  - Secretion discharge [Not Recovered/Not Resolved]
  - Haemorrhage [Not Recovered/Not Resolved]
  - Loss of personal independence in daily activities [Recovering/Resolving]
  - Colon cancer stage I [Recovering/Resolving]
  - Hyperphagia [Recovered/Resolved]
  - Intestinal haemorrhage [Recovered/Resolved]
  - Procedural pain [Recovered/Resolved]
  - Hidradenitis [Not Recovered/Not Resolved]

NARRATIVE: CASE EVENT DATE: 2020
